FAERS Safety Report 9297186 (Version 1)
Quarter: 2013Q2

REPORT INFORMATION
  Report Type: Spontaneous
  Country: CN (occurrence: CN)
  Receive Date: 20130520
  Receipt Date: 20130520
  Transmission Date: 20140414
  Serious: Yes (Hospitalization)
  Sender: FDA-Public Use
  Company Number: CN-RANBAXY-2013R1-68923

PATIENT
  Age: 13 Year
  Sex: Female

DRUGS (3)
  1. OLANZAPINE [Suspect]
     Indication: MENTAL DISORDER
     Dosage: 10 MG, QD
     Route: 065
  2. TOPIRAMATE [Suspect]
     Indication: MENTAL DISORDER
     Dosage: 150MG/DAY
     Route: 065
  3. TOPIRAMATE [Suspect]
     Indication: MENTAL DISORDER
     Dosage: 175MG/DAY
     Route: 065

REACTIONS (3)
  - Hallucination [Recovered/Resolved]
  - Renal tubular acidosis [Recovered/Resolved]
  - Restlessness [Recovered/Resolved]
